FAERS Safety Report 24805892 (Version 1)
Quarter: 2025Q1

REPORT INFORMATION
  Report Type: Spontaneous
  Country: US (occurrence: None)
  Receive Date: 20250103
  Receipt Date: 20250103
  Transmission Date: 20250409
  Serious: No
  Sender: FDA-CTU
  Company Number: None

PATIENT

DRUGS (1)
  1. ALREX [Suspect]
     Active Substance: LOTEPREDNOL ETABONATE

REACTIONS (4)
  - Discomfort [None]
  - Burning sensation [None]
  - Pruritus [None]
  - Tissue irritation [None]
